FAERS Safety Report 6919450-4 (Version None)
Quarter: 2010Q3

REPORT INFORMATION
  Report Type: 
  Country: None (occurrence: None)
  Receive Date: 20100811
  Receipt Date: 20100804
  Transmission Date: 20110219
  Serious: Yes (Other)
  Sender: FDA-Public Use
  Company Number: B0668283A

PATIENT
  Sex: Male
  Weight: 54.7 kg

DRUGS (10)
  1. MARAVIROC [Suspect]
     Indication: HIV INFECTION
     Route: 048
     Dates: start: 20100709, end: 20100716
  2. TRUVADA [Concomitant]
     Indication: HIV INFECTION
     Dates: start: 20100709
  3. STOCRIN [Concomitant]
     Indication: HIV INFECTION
     Dates: start: 20100709
  4. RIFAMPICIN [Concomitant]
     Indication: TUBERCULOSIS
     Dosage: 600MG PER DAY
     Dates: start: 20100608
  5. ETHAMBUTOL HYDROCHLORIDE [Concomitant]
     Indication: TUBERCULOSIS
     Dates: start: 20100608
  6. PROBON [Concomitant]
     Indication: TUBERCULOSIS
     Dates: start: 20100608
  7. VIT B [Concomitant]
     Dates: start: 20100501
  8. IMODIUM [Concomitant]
     Dates: start: 20100712
  9. ISONIAZID [Suspect]
  10. BACTRIM [Suspect]

REACTIONS (1)
  - PRURITUS [None]
